FAERS Safety Report 11661308 (Version 1)
Quarter: 2015Q4

REPORT INFORMATION
  Report Type: Spontaneous
  Country: US (occurrence: US)
  Receive Date: 20151026
  Receipt Date: 20151026
  Transmission Date: 20160304
  Serious: No
  Sender: FDA-Public Use
  Company Number: US-JUBILANT CADISTA PHARMACEUTICALS-2015JUB00080

PATIENT
  Age: 91 Year
  Sex: Male
  Weight: 56.69 kg

DRUGS (18)
  1. PREDNISONE. [Suspect]
     Active Substance: PREDNISONE
     Dosage: 15 MG, 1X/DAY
     Route: 048
     Dates: start: 20150216, end: 20150223
  2. PREDNISONE. [Suspect]
     Active Substance: PREDNISONE
     Dosage: 20 MG, 1X/DAY
     Route: 048
     Dates: start: 20150208, end: 20150215
  3. PREDNISONE. [Suspect]
     Active Substance: PREDNISONE
     Dosage: 10 MG, 1X/DAY
     Route: 048
     Dates: start: 20150224, end: 20150303
  4. SPIRONOLACTONE. [Concomitant]
     Active Substance: SPIRONOLACTONE
     Dosage: 25 MG, 1X/DAY
  5. AMIODARONE [Concomitant]
     Active Substance: AMIODARONE
     Dosage: 100 MG, 1X/DAY
  6. AVODART [Concomitant]
     Active Substance: DUTASTERIDE
     Dosage: 1 DOSAGE UNITS, EVERY 48 HOURS
  7. ALPRAZOLAM. [Concomitant]
     Active Substance: ALPRAZOLAM
     Dosage: 0.5 MG, UNK
  8. PREDNISONE. [Suspect]
     Active Substance: PREDNISONE
     Dosage: .5 TABLETS, 1X/DAY
     Route: 048
     Dates: start: 20150304, end: 20150310
  9. VITAMN D [Concomitant]
     Dosage: 5000 UNK, UNK
  10. PREDNISONE. [Suspect]
     Active Substance: PREDNISONE
     Indication: SMALL CELL LUNG CANCER
     Dosage: 40 MG, 1X/DAY
     Route: 048
     Dates: start: 20150108, end: 20150115
  11. PREDNISONE. [Suspect]
     Active Substance: PREDNISONE
     Dosage: 25 MG, 1X/DAY
     Route: 048
     Dates: start: 20150131, end: 20150207
  12. BUMETANIDE. [Concomitant]
     Active Substance: BUMETANIDE
     Dosage: 2 MG, 3X/WEEK
  13. PREDNISONE. [Suspect]
     Active Substance: PREDNISONE
     Dosage: 35 MG, 1X/DAY
     Route: 048
     Dates: start: 20150116, end: 20150123
  14. ATORVASTATIN [Concomitant]
     Active Substance: ATORVASTATIN
     Dosage: 20 MG, UNK
  15. VITAMIN B COMPLEX [Concomitant]
     Active Substance: CYANOCOBALAMIN\DEXPANTHENOL\NIACINAMIDE\PYRIDOXINE HYDROCHLORIDE\RIBOFLAVIN 5^-PHOSPHATE SODIUM\THIAMINE HYDROCHLORIDE\VITAMIN B COMPLEX
     Dosage: UNK, 1X/DAY
  16. CALITRIOL [Concomitant]
     Dosage: .20 MG, 1X/DAY
  17. PREDNISONE. [Suspect]
     Active Substance: PREDNISONE
     Dosage: 30 MG, 1X/DAY
     Route: 048
     Dates: start: 20150124, end: 20150130
  18. VITAMIN B12 [Concomitant]
     Active Substance: CYANOCOBALAMIN
     Dosage: 1000 ?G, UNK

REACTIONS (4)
  - Muscular weakness [Not Recovered/Not Resolved]
  - Increased appetite [Not Recovered/Not Resolved]
  - Dry mouth [Not Recovered/Not Resolved]
  - Muscle fatigue [Not Recovered/Not Resolved]

NARRATIVE: CASE EVENT DATE: 201501
